FAERS Safety Report 9504883 (Version 4)
Quarter: 2014Q2

REPORT INFORMATION
  Report Type: Spontaneous
  Country: US (occurrence: US)
  Receive Date: 20130906
  Receipt Date: 20140423
  Transmission Date: 20141212
  Serious: Yes (Death, Hospitalization)
  Sender: FDA-Public Use
  Company Number: US-B.I. PHARMACEUTICALS,INC./RIDGEFIELD-2013-BI-27596BP

PATIENT
  Age: 62 Year
  Sex: Male
  Weight: 81.65 kg

DRUGS (14)
  1. PRADAXA [Suspect]
     Indication: ATRIAL FIBRILLATION
     Dosage: 300 MG
     Route: 048
     Dates: start: 20110119, end: 20111207
  2. ATENOLOL [Concomitant]
     Dosage: 50 MG
     Route: 048
     Dates: start: 200603, end: 201112
  3. LISINOPRIL [Concomitant]
     Route: 065
     Dates: start: 200603, end: 201112
  4. VYTORIN [Concomitant]
     Route: 048
     Dates: start: 200605, end: 201112
  5. LEVEMIR INSULIN [Concomitant]
     Route: 065
     Dates: start: 201005, end: 201101
  6. AMARYL [Concomitant]
     Route: 065
     Dates: start: 200603, end: 201112
  7. ISORDIL [Concomitant]
     Route: 065
  8. METFORMIN [Concomitant]
     Route: 065
     Dates: start: 200612, end: 201112
  9. FISH OIL [Concomitant]
     Dosage: 2000 MG
     Route: 048
  10. BABY ASPIRIN [Concomitant]
     Dosage: 81 MG
     Route: 048
  11. DIGOXIN [Concomitant]
     Dosage: 250 MCG
     Route: 048
  12. NITROSTAT [Concomitant]
     Route: 060
  13. FUROSEMIDE [Concomitant]
     Route: 048
  14. POTASSIUM CHLORIDE [Concomitant]
     Dosage: 20 MEQ
     Route: 048

REACTIONS (4)
  - Embolic stroke [Fatal]
  - Thrombocytopenia [Fatal]
  - Anaemia [Unknown]
  - Thrombocytopenic purpura [Unknown]
